FAERS Safety Report 5825735-5 (Version None)
Quarter: 2008Q3

REPORT INFORMATION
  Report Type: 
  Country: None (occurrence: None)
  Receive Date: 20080728
  Receipt Date: 20080728
  Transmission Date: 20090109
  Serious: Yes (Life-Threatening, Other)
  Sender: FDA-Public Use
  Company Number: None

PATIENT
  Age: 38 Year
  Sex: Female
  Weight: 65.7716 kg

DRUGS (1)
  1. NUVARING [Suspect]
     Indication: CONTRACEPTION
     Dosage: DELIVERS 0.120 MG/0.015 MG/DA MONTHLY ENDOCERVICA
     Route: 005
     Dates: start: 20060616, end: 20080410

REACTIONS (3)
  - MUSCLE INJURY [None]
  - MUSCLE SPASMS [None]
  - THROMBOSIS [None]
